FAERS Safety Report 6801681-5 (Version None)
Quarter: 2010Q2

REPORT INFORMATION
  Report Type: 
  Country: None (occurrence: None)
  Receive Date: 20100629
  Receipt Date: 20100621
  Transmission Date: 20101027
  Serious: Yes (Other)
  Sender: FDA-Public Use
  Company Number: AU-ASTRAZENECA-2010SE29624

PATIENT
  Age: 73 Year
  Sex: Male

DRUGS (6)
  1. CRESTOR [Suspect]
     Route: 048
     Dates: end: 20100527
  2. LIPIDIL [Suspect]
     Dates: end: 20100527
  3. COUMADIN [Concomitant]
  4. COVERSYL [Concomitant]
  5. DILATREND [Concomitant]
  6. LANOXIN [Concomitant]

REACTIONS (4)
  - ACUTE MYOCARDIAL INFARCTION [None]
  - CIRCULATORY COLLAPSE [None]
  - PULMONARY INFARCTION [None]
  - RHABDOMYOLYSIS [None]
